FAERS Safety Report 8340205-0 (Version None)
Quarter: 2012Q2

REPORT INFORMATION
  Report Type: 
  Country: None (occurrence: None)
  Receive Date: 20120502
  Receipt Date: 20120502
  Transmission Date: 20120825
  Serious: Yes (Other)
  Sender: FDA-Public Use
  Company Number: None

PATIENT
  Sex: Male
  Weight: 104.1 kg

DRUGS (1)
  1. WARFARIN SODIUM [Suspect]
     Indication: DEEP VEIN THROMBOSIS
     Dosage: WARFARIN 5MG QDAY PO
     Route: 048
     Dates: start: 20120417, end: 20120426

REACTIONS (3)
  - VOMITING [None]
  - PRODUCT SUBSTITUTION ISSUE [None]
  - DRUG HYPERSENSITIVITY [None]
